FAERS Safety Report 9471576 (Version 2)
Quarter: 2013Q3

REPORT INFORMATION
  Report Type: Spontaneous
  Country: US (occurrence: US)
  Receive Date: 20130822
  Receipt Date: 20130916
  Transmission Date: 20140515
  Serious: Yes (Disabling, Other)
  Sender: FDA-Public Use
  Company Number: US-B.I. PHARMACEUTICALS,INC./RIDGEFIELD-2013-BI-25825BP

PATIENT
  Age: 64 Year
  Sex: Male
  Weight: 130 kg

DRUGS (6)
  1. SPIRIVA [Suspect]
     Indication: EMPHYSEMA
     Dosage: 18 MCG
     Route: 048
     Dates: start: 2010
  2. ALBUTEROL [Concomitant]
     Indication: EMPHYSEMA
     Route: 055
     Dates: start: 2011
  3. DAPSONE [Concomitant]
     Dosage: 100 MG
     Route: 048
     Dates: start: 201304
  4. LORAZEPAM [Concomitant]
     Indication: INSOMNIA
     Dosage: 0.5 MG
     Route: 048
     Dates: start: 2011
  5. FLUCONAZOLE [Concomitant]
     Dosage: 200 MG
     Route: 048
     Dates: start: 201304
  6. METFORMIN [Concomitant]
     Indication: DIABETES MELLITUS
     Dosage: 500 MG
     Route: 048
     Dates: start: 201304

REACTIONS (3)
  - Central nervous system lymphoma [Not Recovered/Not Resolved]
  - Brain neoplasm malignant [Not Recovered/Not Resolved]
  - Incorrect route of drug administration [Recovered/Resolved]
